FAERS Safety Report 9908162 (Version 3)
Quarter: 2014Q2

REPORT INFORMATION
  Report Type: Spontaneous
  Country: US (occurrence: None)
  Receive Date: 20140211
  Receipt Date: 20140402
  Transmission Date: 20141212
  Serious: Yes (Other)
  Sender: FDA-Public Use
  Company Number: 2014US000720

PATIENT
  Sex: Male

DRUGS (1)
  1. GLASSIA [Suspect]
     Indication: PRODUCT USED FOR UNKNOWN INDICATION
     Dosage: WEEKLY INTRAVENOUS
     Route: 042
     Dates: start: 20130627

REACTIONS (2)
  - Coronary artery disease [None]
  - Coronary artery occlusion [None]
